FAERS Safety Report 9639796 (Version 1)
Quarter: 2013Q4

REPORT INFORMATION
  Report Type: Spontaneous
  Country: US (occurrence: None)
  Receive Date: 20131021
  Receipt Date: 20131021
  Transmission Date: 20140711
  Serious: Yes (Other)
  Sender: FDA-Public Use
  Company Number: None

PATIENT
  Age: 17 Year
  Sex: Female
  Weight: 68.04 kg

DRUGS (1)
  1. CEPHALEXIN [Suspect]
     Indication: INFECTION
     Dosage: 1 CAPSULE, THREE TIMES DAILY, TAKEN BY MOUTH
     Route: 048
     Dates: start: 20130909, end: 20130919

REACTIONS (5)
  - Feeling cold [None]
  - Piloerection [None]
  - Swelling [None]
  - Infection [None]
  - No therapeutic response [None]
